FAERS Safety Report 8859197 (Version 1)
Quarter: 2012Q4

REPORT INFORMATION
  Report Type: 
  Country: US (occurrence: US)
  Receive Date: 20121024
  Receipt Date: 20121024
  Transmission Date: 20130627
  Serious: No
  Sender: FDA-Public Use
  Company Number: US-PFIZER INC-2012265389

PATIENT
  Age: 72 Year
  Sex: Female
  Weight: 90.7 kg

DRUGS (6)
  1. LYRICA [Suspect]
     Indication: HERPES ZOSTER
     Dosage: 50 mg, daily at night
     Route: 048
     Dates: start: 20121019, end: 20121021
  2. METOPROLOL SUCCINATE [Concomitant]
     Indication: ATRIAL FIBRILLATION
     Dosage: 25 mg, UNK
  3. ACETYLSALICYLIC ACID [Concomitant]
     Dosage: 81 mg, daily
  4. LEVOTHYROXINE [Concomitant]
     Indication: THYROID DISORDER
     Dosage: 25 ug, daily
  5. VITAMIN B12 [Concomitant]
     Dosage: 1500 ug, daily
  6. ALENDRONATE SODIUM [Concomitant]
     Dosage: 70 mg, weekly

REACTIONS (1)
  - Hypoaesthesia [Recovered/Resolved]
